FAERS Safety Report 23962452 (Version 2)
Quarter: 2024Q3

REPORT INFORMATION
  Report Type: Spontaneous
  Country: US (occurrence: US)
  Receive Date: 20240611
  Receipt Date: 20240731
  Transmission Date: 20241017
  Serious: No
  Sender: PFIZER
  Company Number: US-PFIZER INC-PV202400075543

PATIENT
  Age: 63 Year
  Sex: Female

DRUGS (15)
  1. SOLU-MEDROL [Suspect]
     Active Substance: METHYLPREDNISOLONE SODIUM SUCCINATE
     Indication: Premedication
     Dosage: UNK
  2. SOLU-MEDROL [Suspect]
     Active Substance: METHYLPREDNISOLONE SODIUM SUCCINATE
     Dosage: UNK
     Dates: start: 20240501
  3. OCREVUS [Concomitant]
     Active Substance: OCRELIZUMAB
     Dosage: UNK
  4. OCREVUS [Concomitant]
     Active Substance: OCRELIZUMAB
     Dosage: UNK
     Dates: start: 20240501
  5. BUSPIRONE [Concomitant]
     Active Substance: BUSPIRONE HYDROCHLORIDE
  6. MELOXICAM [Concomitant]
     Active Substance: MELOXICAM
  7. EQUATE PAIN RELIEVING [Concomitant]
     Active Substance: CAMPHOR (SYNTHETIC)\MENTHOL\METHYL SALICYLATE
  8. BACLOFEN [Concomitant]
     Active Substance: BACLOFEN
  9. IBUPROFEN [Concomitant]
     Active Substance: IBUPROFEN
  10. LORAZEPAM [Concomitant]
     Active Substance: LORAZEPAM
  11. REBIF [Concomitant]
     Active Substance: INTERFERON BETA-1A
  12. TRAMADOL [Concomitant]
     Active Substance: TRAMADOL\TRAMADOL HYDROCHLORIDE
  13. VALTREX [Concomitant]
     Active Substance: VALACYCLOVIR HYDROCHLORIDE
  14. LISINOPRIL [Concomitant]
     Active Substance: LISINOPRIL
  15. PREDNISONE [Concomitant]
     Active Substance: PREDNISONE

REACTIONS (4)
  - Insomnia [Unknown]
  - Personality change [Unknown]
  - Feeling abnormal [Unknown]
  - Thinking abnormal [Unknown]
